FAERS Safety Report 9321896 (Version 2)
Quarter: 2013Q2

REPORT INFORMATION
  Report Type: Spontaneous
  Country: US (occurrence: None)
  Receive Date: 20130528
  Receipt Date: 20130610
  Transmission Date: 20140414
  Serious: Yes (Disabling, Other)
  Sender: FDA-Public Use
  Company Number: 1305-664

PATIENT
  Age: 70 Year
  Sex: Female

DRUGS (1)
  1. EYLEA [Suspect]
     Indication: AGE-RELATED MACULAR DEGENERATION
     Dosage: 1 IN 8 WK, INTRAVITREAL
     Dates: start: 20120206, end: 20130508

REACTIONS (4)
  - Non-infectious endophthalmitis [None]
  - Visual acuity reduced [None]
  - Vitreous floaters [None]
  - Vision blurred [None]
